FAERS Safety Report 7619269 (Version 2)
Quarter: 2013Q2

REPORT INFORMATION
  Report Type: Report from Study
  Country: CA (occurrence: US)
  Receive Date: 20101006
  Receipt Date: 20130403
  Transmission Date: 20140414
  Serious: Yes (Death, Hospitalization)
  Sender: FDA-Public Use
  Company Number: CA-ROCHE-719721

PATIENT
  Age: 64 Year
  Sex: Male
  Weight: 80 kg

DRUGS (7)
  1. TOCILIZUMAB [Suspect]
     Indication: RHEUMATOID ARTHRITIS
     Dosage: DOSAGE FORM: INFUSION SOLUTION. DATE OF LAST DOSE PRIOR TOSAE: 09 JULY 2010.
     Route: 042
     Dates: start: 20090504, end: 20100805
  2. TOCILIZUMAB [Suspect]
     Indication: RHEUMATOID ARTHRITIS
     Dosage: CORE STUDY: MA21573.
     Route: 042
  3. LIPITOR [Concomitant]
     Dosage: START DATE: PRIOR TO STUDY.
     Route: 065
     Dates: start: 20090818, end: 20100908
  4. COUMADIN [Concomitant]
     Dosage: TDD: EVERY OTHER DAY 3 MG.
     Route: 065
     Dates: start: 2003, end: 20100908
  5. FOLIC ACID [Concomitant]
     Route: 065
     Dates: start: 20071001, end: 20100908
  6. CELEBREX [Concomitant]
     Dosage: START DATE: PRIOR TO STUDY.
     Route: 065
  7. METHOTREXATE [Concomitant]
     Dosage: START DATE: PRIOR TO STUDY.
     Route: 065

REACTIONS (3)
  - Cardiac arrest [Fatal]
  - Colon cancer [Recovered/Resolved]
  - Haematochezia [Unknown]
